FAERS Safety Report 5708291-1 (Version None)
Quarter: 2008Q2

REPORT INFORMATION
  Report Type: 
  Country: None (occurrence: None)
  Receive Date: 20080417
  Receipt Date: 20080409
  Transmission Date: 20081010
  Serious: Yes (Other)
  Sender: FDA-Public Use
  Company Number: JP-MERCK-0804USA02788

PATIENT
  Age: 94 Year
  Sex: Female

DRUGS (13)
  1. PEPCID RPD [Suspect]
     Route: 048
  2. GARENOXACIN MESYLATE [Suspect]
     Route: 048
     Dates: start: 20080326, end: 20080328
  3. AMARYL [Concomitant]
     Route: 048
  4. EBASTEL [Concomitant]
     Route: 048
  5. LENDORMIN [Concomitant]
     Route: 048
  6. GRAMALIL [Concomitant]
     Route: 048
  7. COZAAR [Concomitant]
     Route: 048
  8. CALSLOT [Concomitant]
     Route: 048
  9. ONEALFA [Concomitant]
     Route: 048
  10. GLYSENNID [Concomitant]
     Route: 048
  11. TERBINAFINE HYDROCHLORIDE [Concomitant]
     Route: 048
  12. MUCOSOLVAN [Concomitant]
     Route: 048
  13. DIHYDROCODEINE PHOSPHATE [Concomitant]
     Route: 065

REACTIONS (2)
  - DEPRESSED LEVEL OF CONSCIOUSNESS [None]
  - HYPOGLYCAEMIA [None]
